FAERS Safety Report 10208318 (Version 2)
Quarter: 2014Q2

REPORT INFORMATION
  Report Type: Spontaneous
  Country: US (occurrence: US)
  Receive Date: 20140530
  Receipt Date: 20140606
  Transmission Date: 20141212
  Serious: No
  Sender: FDA-Public Use
  Company Number: US-TEVA-484520USA

PATIENT
  Age: 86 Year
  Sex: Female
  Weight: 56.75 kg

DRUGS (6)
  1. PROAIR HFA [Suspect]
     Indication: WHEEZING
     Route: 055
     Dates: start: 201405
  2. PROAIR HFA [Suspect]
     Indication: COUGH
  3. PROAIR HFA [Suspect]
     Indication: INFECTION
  4. FEXOFENADINE [Concomitant]
  5. HYZAAR [Concomitant]
  6. ATORVASTATIN CALCIUM [Concomitant]

REACTIONS (3)
  - Wheezing [Recovering/Resolving]
  - Drug ineffective [Recovering/Resolving]
  - Device use error [Unknown]
